FAERS Safety Report 8793187 (Version 2)
Quarter: 2015Q2

REPORT INFORMATION
  Report Type: Report from Study
  Country: US (occurrence: US)
  Receive Date: 20120918
  Receipt Date: 20150618
  Transmission Date: 20150821
  Serious: Yes (Death)
  Sender: FDA-Public Use
  Company Number: US-ROCHE-1125025

PATIENT
  Sex: Male

DRUGS (10)
  1. LEUCOVORIN [Concomitant]
     Active Substance: LEUCOVORIN
  2. ZANTAC [Concomitant]
     Active Substance: RANITIDINE HYDROCHLORIDE
     Route: 042
  3. ZOFRAN [Concomitant]
     Active Substance: ONDANSETRON HYDROCHLORIDE
  4. DECADRON [Concomitant]
     Active Substance: DEXAMETHASONE
     Route: 042
  5. 5-FLUOROURACIL [Concomitant]
     Active Substance: FLUOROURACIL
     Route: 042
  6. BENADRYL [Concomitant]
     Active Substance: DIPHENHYDRAMINE HYDROCHLORIDE
  7. AVASTIN [Suspect]
     Active Substance: BEVACIZUMAB
     Indication: LUNG NEOPLASM MALIGNANT
     Route: 042
  8. CISPLATIN. [Concomitant]
     Active Substance: CISPLATIN
     Route: 042
  9. TAXOL [Concomitant]
     Active Substance: PACLITAXEL
     Route: 042
  10. PEGFILGRASTIM [Concomitant]
     Active Substance: PEGFILGRASTIM

REACTIONS (2)
  - Death [Fatal]
  - Off label use [Unknown]
